FAERS Safety Report 5132261-8 (Version None)
Quarter: 2006Q4

REPORT INFORMATION
  Report Type: 
  Country: None (occurrence: None)
  Receive Date: 20061017
  Receipt Date: 20061006
  Transmission Date: 20070319
  Serious: Yes (Disabling, Other)
  Sender: FDA-Public Use
  Company Number: 229048

PATIENT
  Age: 82 Year
  Sex: Female

DRUGS (6)
  1. LUCENTIS [Suspect]
     Indication: MACULAR DEGENERATION
     Dosage: SEE IMAGE
     Dates: start: 20060725, end: 20060725
  2. LUCENTIS [Suspect]
     Indication: MACULAR DEGENERATION
     Dosage: SEE IMAGE
     Dates: start: 20060828
  3. LUCENTIS [Suspect]
     Indication: MACULAR DEGENERATION
     Dosage: SEE IMAGE
     Dates: start: 20060925
  4. CALCIUM (CALCIUM NOS) [Concomitant]
  5. VITAMINS (VITAMINS NOS) [Concomitant]
  6. NEXIUM [Concomitant]

REACTIONS (3)
  - ACTIVITIES OF DAILY LIVING IMPAIRED [None]
  - BLINDNESS [None]
  - DRUG INEFFECTIVE [None]
